FAERS Safety Report 6293888-3 (Version None)
Quarter: 2009Q3

REPORT INFORMATION
  Report Type: 
  Country: None (occurrence: None)
  Receive Date: 20090730
  Receipt Date: 20090722
  Transmission Date: 20100115
  Serious: Yes (Hospitalization)
  Sender: FDA-Public Use
  Company Number: 2009001435

PATIENT
  Age: 77 Year
  Sex: Male

DRUGS (10)
  1. DIGOXIN [Suspect]
     Dosage: 0.25 MG, DAILY, PO
     Route: 048
     Dates: start: 20070301, end: 20080623
  2. COZAAR [Concomitant]
  3. METOPROLOL SUCCINATE [Concomitant]
  4. VICODIN [Concomitant]
  5. XALATAN [Concomitant]
  6. TIMOLOL MALEATE [Concomitant]
  7. PRAVACHOL [Concomitant]
  8. POTASSIUM CHLORIDE [Concomitant]
  9. LASIX [Concomitant]
  10. COUMADIN [Concomitant]

REACTIONS (12)
  - ATRIAL FIBRILLATION [None]
  - CARDIAC FAILURE CONGESTIVE [None]
  - DECREASED ACTIVITY [None]
  - DRUG TOXICITY [None]
  - DYSPNOEA [None]
  - ECONOMIC PROBLEM [None]
  - FEELING ABNORMAL [None]
  - HEART RATE INCREASED [None]
  - ILL-DEFINED DISORDER [None]
  - MULTIPLE INJURIES [None]
  - OVERDOSE [None]
  - QUALITY OF LIFE DECREASED [None]
